FAERS Safety Report 9559317 (Version 2)
Quarter: 2014Q1

REPORT INFORMATION
  Report Type: Spontaneous
  Country: US (occurrence: None)
  Receive Date: 20130906
  Receipt Date: 20131205
  Transmission Date: 20141002
  Serious: No
  Sender: FDA-Public Use
  Company Number: 163-POMAL-13052802

PATIENT
  Age: 61 Year
  Sex: Male

DRUGS (1)
  1. POMALYST [Suspect]
     Indication: PLASMA CELL MYELOMA
     Dosage: 4 MG, 1 IN 1 D, PO
     Route: 048
     Dates: start: 20130314, end: 20130606

REACTIONS (4)
  - Cheilitis [None]
  - Rash [None]
  - Rash papular [None]
  - Plasma cell myeloma [None]
